FAERS Safety Report 6056365-0 (Version None)
Quarter: 2009Q1

REPORT INFORMATION
  Report Type: 
  Country: None (occurrence: None)
  Receive Date: 20090129
  Receipt Date: 20090119
  Transmission Date: 20090719
  Serious: Yes (Hospitalization)
  Sender: FDA-Public Use
  Company Number: NL-WATSON-2009-00273

PATIENT
  Age: 80 Year
  Sex: Male

DRUGS (1)
  1. FIORINAL [Suspect]
     Indication: LACUNAR INFARCTION
     Dosage: UNK

REACTIONS (1)
  - CEREBRAL HAEMATOMA [None]
